FAERS Safety Report 4877888-3 (Version None)
Quarter: 2006Q1

REPORT INFORMATION
  Report Type: 
  Country: None (occurrence: None)
  Receive Date: 20060109
  Receipt Date: 20051228
  Transmission Date: 20060701
  Serious: Yes (Hospitalization, Other)
  Sender: FDA-Public Use
  Company Number: 2006000334

PATIENT
  Age: 46 Year
  Sex: Female
  Weight: 81.6475 kg

DRUGS (8)
  1. ATARAX [Suspect]
     Indication: ILL-DEFINED DISORDER
     Dosage: 30 MG (10 MG, 3 IN 1 D)
  2. WELLBUTRIN [Suspect]
     Indication: DEPRESSION
     Dates: end: 20050901
  3. WELLBUTRIN [Suspect]
     Indication: SMOKING CESSATION THERAPY
     Dates: end: 20050901
  4. NAPROXEN [Suspect]
     Indication: INFLAMMATION
     Dates: end: 20050901
  5. NAPROXEN [Suspect]
     Indication: PAIN
     Dates: end: 20050901
  6. TENORMIN [Concomitant]
  7. ALL OTHER THERAPEUTIC PRODUCTS (ALL OTHER THERAPEUTIC PRODUCTS) [Concomitant]
  8. PROVENTIL [Concomitant]

REACTIONS (7)
  - CONTUSION [None]
  - CONVULSION [None]
  - CORONARY ARTERY DISEASE [None]
  - ECONOMIC PROBLEM [None]
  - MYOCARDIAL INFARCTION [None]
  - PLASMA VISCOSITY DECREASED [None]
  - TREATMENT NONCOMPLIANCE [None]
